FAERS Safety Report 14184803 (Version 11)
Quarter: 2020Q2

REPORT INFORMATION
  Report Type: Report from Study
  Country: US (occurrence: US)
  Receive Date: 20171113
  Receipt Date: 20200616
  Transmission Date: 20200713
  Serious: Yes (Hospitalization, Other)
  Sender: FDA-Public Use
  Company Number: US-ACTELION-A-US2017-162195

PATIENT
  Sex: Female

DRUGS (15)
  1. HYDRALAZINE [Concomitant]
     Active Substance: HYDRALAZINE HYDROCHLORIDE
  2. WARFARIN [Concomitant]
     Active Substance: WARFARIN
  3. FUROSEMIDE. [Concomitant]
     Active Substance: FUROSEMIDE
  4. ISOSORBIDE. [Concomitant]
     Active Substance: ISOSORBIDE
  5. ISOSORBIDE MONONITRATE. [Concomitant]
     Active Substance: ISOSORBIDE MONONITRATE
  6. OPSUMIT [Suspect]
     Active Substance: MACITENTAN
     Dosage: UNK
     Route: 048
  7. SIMVASTATIN. [Concomitant]
     Active Substance: SIMVASTATIN
  8. LANTUS [Concomitant]
     Active Substance: INSULIN GLARGINE
  9. HUMALOG [Concomitant]
     Active Substance: INSULIN LISPRO
  10. VITAMIN D [Concomitant]
     Active Substance: VITAMIN D NOS
  11. OPSUMIT [Suspect]
     Active Substance: MACITENTAN
     Indication: PULMONARY ARTERIAL HYPERTENSION
     Dosage: 10 MG, QD
     Route: 048
     Dates: start: 20160812, end: 202001
  12. METOPROLOL. [Concomitant]
     Active Substance: METOPROLOL
  13. BACLOFEN. [Concomitant]
     Active Substance: BACLOFEN
  14. FENOFIBRATE. [Concomitant]
     Active Substance: FENOFIBRATE
  15. METOPROLOL TARTRATE. [Concomitant]
     Active Substance: METOPROLOL TARTRATE

REACTIONS (15)
  - Brain neoplasm [Unknown]
  - Fall [Unknown]
  - Diabetes mellitus [Unknown]
  - Dyspnoea [Unknown]
  - Mental status changes [Unknown]
  - Malaise [Unknown]
  - Cardiac failure [Unknown]
  - Cardiac failure congestive [Unknown]
  - Hospitalisation [Not Recovered/Not Resolved]
  - Upper limb fracture [Unknown]
  - Speech disorder [Unknown]
  - Disease complication [Unknown]
  - Condition aggravated [Unknown]
  - Fatigue [Unknown]
  - Product dose omission [Unknown]
